FAERS Safety Report 9535880 (Version 1)
Quarter: 2013Q3

REPORT INFORMATION
  Report Type: Spontaneous
  Country: US (occurrence: None)
  Receive Date: 20130917
  Receipt Date: 20130917
  Transmission Date: 20140515
  Serious: No
  Sender: FDA-Public Use
  Company Number: None

PATIENT
  Age: 36 Year
  Sex: Male
  Weight: 88.6 kg

DRUGS (2)
  1. AMITRIPTYLINE [Suspect]
     Indication: SLEEP DISORDER
     Route: 048
     Dates: start: 20110927, end: 20111018
  2. AMITRIPTYLINE [Suspect]
     Route: 048

REACTIONS (1)
  - Hypotension [None]
